FAERS Safety Report 15506243 (Version 3)
Quarter: 2018Q4

REPORT INFORMATION
  Report Type: Spontaneous
  Country: IT (occurrence: IT)
  Receive Date: 20181016
  Receipt Date: 20181218
  Transmission Date: 20190205
  Serious: Yes (Hospitalization)
  Sender: FDA-Public Use
  Company Number: PHHY2018IT122301

PATIENT
  Sex: Male
  Weight: 3.36 kg

DRUGS (6)
  1. EUTIROX [Concomitant]
     Active Substance: LEVOTHYROXINE SODIUM
     Indication: FOETAL EXPOSURE DURING PREGNANCY
     Dosage: MATERNAL DOSE: 50 UG, QD
     Route: 064
     Dates: start: 2017
  2. MIGRASOLL [Concomitant]
     Indication: FOETAL EXPOSURE DURING PREGNANCY
     Dosage: MATERNAL DOSE:UNKNOWN
     Route: 064
  3. XERENAL [Concomitant]
     Indication: FOETAL EXPOSURE DURING PREGNANCY
     Dosage: MATERNAL DOSE: 50000 U, QMO (MONTHLY)
     Route: 064
  4. PREFOLIC [Concomitant]
     Active Substance: LEUCOVORIN CALCIUM
     Indication: FOETAL EXPOSURE DURING PREGNANCY
     Dosage: MATERNAL DOSE: 15 MG, QD
     Route: 064
     Dates: start: 20171222
  5. GILENYA [Suspect]
     Active Substance: FINGOLIMOD HYDROCHLORIDE
     Indication: FOETAL EXPOSURE DURING PREGNANCY
     Dosage: MATERNAL DOSE: 0.5 MG, UNK
     Route: 064
  6. VITAMIN D [Concomitant]
     Active Substance: CHOLECALCIFEROL
     Indication: FOETAL EXPOSURE DURING PREGNANCY
     Dosage: MATERNAL DOSE: UNK
     Route: 064
     Dates: start: 20171222

REACTIONS (3)
  - Foetal exposure during pregnancy [Unknown]
  - Thrombocytopenia [Recovered/Resolved]
  - Sepsis [Recovered/Resolved]
